FAERS Safety Report 9776920 (Version 2)
Quarter: 2014Q1

REPORT INFORMATION
  Report Type: Spontaneous
  Country: US (occurrence: US)
  Receive Date: 20131221
  Receipt Date: 20140123
  Transmission Date: 20141002
  Serious: Yes (Other)
  Sender: FDA-Public Use
  Company Number: US-ASTRAZENECA-2013SE92695

PATIENT
  Age: 52 Year
  Sex: Female

DRUGS (11)
  1. NEXIUM [Suspect]
     Route: 048
  2. PRILOSEC [Suspect]
     Route: 048
  3. KOMBIGLYZE XR [Suspect]
     Route: 048
  4. TRACLEER [Concomitant]
  5. VYTORIN [Concomitant]
  6. FUROSEMIDE [Concomitant]
  7. MAGNESIUM [Concomitant]
  8. CHROMIUM [Concomitant]
  9. VITAMIN D [Concomitant]
  10. DEXLANSOPRAZOLE [Concomitant]
  11. ACIPHEX [Concomitant]

REACTIONS (3)
  - Scleroderma [Unknown]
  - Raynaud^s phenomenon [Unknown]
  - Barrett^s oesophagus [Unknown]
